FAERS Safety Report 17729424 (Version 1)
Quarter: 2020Q2

REPORT INFORMATION
  Report Type: Spontaneous
  Country: FR (occurrence: FR)
  Receive Date: 20200430
  Receipt Date: 20200430
  Transmission Date: 20200714
  Serious: Yes (Other)
  Sender: FDA-Public Use
  Company Number: FR-ACCORD-180009

PATIENT
  Age: 68 Year
  Sex: Male
  Weight: 61 kg

DRUGS (5)
  1. SOLU-MEDROL [Concomitant]
     Active Substance: METHYLPREDNISOLONE SODIUM SUCCINATE
     Indication: PREMEDICATION
     Dosage: STRENGTH  40 MG/2 ML
     Route: 042
     Dates: start: 20200127
  2. EMEND [Concomitant]
     Active Substance: APREPITANT
     Indication: PROPHYLAXIS OF NAUSEA AND VOMITING
     Dosage: STRENGTH 125 MG
     Route: 048
     Dates: start: 20200127
  3. CISPLATIN ACCORD [Suspect]
     Active Substance: CISPLATIN
     Indication: CHEMOTHERAPY
     Dosage: STRENGTH 1 MG/ML
     Route: 041
     Dates: start: 20200127, end: 20200127
  4. DOCETAXEL ACCORD [Concomitant]
     Active Substance: DOCETAXEL
     Indication: CHEMOTHERAPY
     Route: 042
     Dates: start: 20200127
  5. ONDANSETRON ACCORD [Concomitant]
     Active Substance: ONDANSETRON
     Indication: PROPHYLAXIS OF NAUSEA AND VOMITING
     Dosage: STRENGTH 2 MG /ML
     Route: 042
     Dates: start: 20200127

REACTIONS (1)
  - Anaphylactoid reaction [Recovered/Resolved]

NARRATIVE: CASE EVENT DATE: 20200127
